FAERS Safety Report 12371389 (Version 1)
Quarter: 2016Q2

REPORT INFORMATION
  Report Type: Spontaneous
  Country: CL (occurrence: CL)
  Receive Date: 20160516
  Receipt Date: 20160516
  Transmission Date: 20160815
  Serious: Yes (Death, Hospitalization)
  Sender: FDA-Public Use
  Company Number: CL-FRESENIUS KABI-FK201602637

PATIENT
  Age: 38 Year
  Sex: Female

DRUGS (2)
  1. CYCLOPHOSPHAMIDE (MANUFACTURER UNKNOWN) [Suspect]
     Active Substance: CYCLOPHOSPHAMIDE
     Indication: SYSTEMIC LUPUS ERYTHEMATOSUS
     Route: 065
  2. METHYLPREDNISOLONE (MANUFACTURER UNKNOWN) [Suspect]
     Active Substance: METHYLPREDNISOLONE
     Indication: SYSTEMIC LUPUS ERYTHEMATOSUS
     Route: 065

REACTIONS (6)
  - Respiratory failure [Fatal]
  - Haemodynamic instability [Fatal]
  - Bronchopulmonary aspergillosis [Fatal]
  - Infection [Fatal]
  - Necrotising bronchiolitis [Fatal]
  - Bronchial obstruction [Fatal]
